FAERS Safety Report 15886502 (Version 2)
Quarter: 2019Q1

REPORT INFORMATION
  Report Type: Spontaneous
  Country: DE (occurrence: DE)
  Receive Date: 20190129
  Receipt Date: 20190206
  Transmission Date: 20190417
  Serious: Yes (Other)
  Sender: FDA-Public Use
  Company Number: PHHY2019DE019131

PATIENT
  Sex: Male

DRUGS (4)
  1. ENALAPRIL [Suspect]
     Active Substance: ENALAPRIL
     Indication: PRODUCT USED FOR UNKNOWN INDICATION
     Dosage: UNK
     Route: 065
     Dates: start: 201711, end: 20171208
  2. ENALAPRIL [Suspect]
     Active Substance: ENALAPRIL
     Dosage: UNK
     Route: 065
     Dates: start: 20180310
  3. ENALAPRIL [Suspect]
     Active Substance: ENALAPRIL
     Dosage: 10 MG, QD
     Route: 065
     Dates: start: 20180319
  4. ENAHEXAL [Concomitant]
     Active Substance: ENALAPRIL MALEATE
     Indication: PRODUCT USED FOR UNKNOWN INDICATION
     Dosage: 20 MG, UNK
     Route: 065
     Dates: start: 20181206

REACTIONS (18)
  - Thoracic outlet syndrome [Unknown]
  - Hypertension [Unknown]
  - Nasopharyngitis [Recovering/Resolving]
  - Feeling abnormal [Unknown]
  - Lymphadenopathy [Recovering/Resolving]
  - Somatic symptom disorder [Unknown]
  - Retching [Unknown]
  - Fatigue [Unknown]
  - Cervicobrachial syndrome [Unknown]
  - Myosclerosis [Unknown]
  - Sinusitis [Recovering/Resolving]
  - Pharyngeal erythema [Recovered/Resolved]
  - Arthropathy [Unknown]
  - Respiratory symptom [Unknown]
  - Seasonal allergy [Unknown]
  - Neuromuscular blockade [Unknown]
  - Cough [Recovering/Resolving]
  - Eustachian tube disorder [Unknown]

NARRATIVE: CASE EVENT DATE: 2018
